FAERS Safety Report 4392995-X (Version None)
Quarter: 2004Q3

REPORT INFORMATION
  Report Type: 
  Country: None (occurrence: None)
  Receive Date: 20040702
  Receipt Date: 20040421
  Transmission Date: 20050211
  Serious: Yes (Other)
  Sender: FDA-Public Use
  Company Number: 2004UW08036

PATIENT
  Age: 79 Year
  Sex: Female
  Weight: 55.7924 kg

DRUGS (1)
  1. CRESTOR [Suspect]
     Indication: BLOOD CHOLESTEROL INCREASED
     Dosage: 10 MG PO
     Route: 048
     Dates: end: 20040419

REACTIONS (4)
  - BLOOD PRESSURE INCREASED [None]
  - IRRITABILITY [None]
  - NERVOUSNESS [None]
  - PALPITATIONS [None]
